FAERS Safety Report 7110131-3 (Version None)
Quarter: 2010Q4

REPORT INFORMATION
  Report Type: 
  Country: None (occurrence: None)
  Receive Date: 20101118
  Receipt Date: 20101108
  Transmission Date: 20110411
  Serious: Yes (Other)
  Sender: FDA-Public Use
  Company Number: US-BAYER-201021526NA

PATIENT
  Age: 18 Year
  Sex: Female
  Weight: 49 kg

DRUGS (2)
  1. YASMIN [Suspect]
     Indication: CONTRACEPTION
     Route: 048
     Dates: start: 20070101, end: 20090101
  2. MOTRIN [Concomitant]
     Dates: start: 20080101

REACTIONS (36)
  - ABDOMINAL DISCOMFORT [None]
  - ABDOMINAL DISTENSION [None]
  - ABDOMINAL PAIN LOWER [None]
  - ABDOMINAL PAIN UPPER [None]
  - ABDOMINAL TENDERNESS [None]
  - ANXIETY [None]
  - CHEST DISCOMFORT [None]
  - CHOLECYSTITIS [None]
  - CHOLELITHIASIS [None]
  - DECREASED APPETITE [None]
  - DEHYDRATION [None]
  - DIZZINESS [None]
  - DYSPNOEA [None]
  - ELECTROCARDIOGRAM T WAVE ABNORMAL [None]
  - EPIGASTRIC DISCOMFORT [None]
  - EYE SWELLING [None]
  - EYELID OEDEMA [None]
  - FAECAL INCONTINENCE [None]
  - FATIGUE [None]
  - HEART RATE INCREASED [None]
  - HEPATOMEGALY [None]
  - INFECTIOUS MONONUCLEOSIS [None]
  - LETHARGY [None]
  - LIVER FUNCTION TEST ABNORMAL [None]
  - MALAISE [None]
  - MEDICAL DIET [None]
  - MUSCULOSKELETAL CHEST PAIN [None]
  - NAUSEA [None]
  - PAIN IN EXTREMITY [None]
  - PALPITATIONS [None]
  - PYREXIA [None]
  - SPLENOMEGALY [None]
  - UPPER RESPIRATORY TRACT INFECTION [None]
  - VARICELLA [None]
  - VIRAL INFECTION [None]
  - VOMITING [None]
